FAERS Safety Report 9370332 (Version 1)
Quarter: 2013Q2

REPORT INFORMATION
  Report Type: Spontaneous
  Country: IT (occurrence: IT)
  Receive Date: 20130626
  Receipt Date: 20130626
  Transmission Date: 20140414
  Serious: Yes (Life-Threatening)
  Sender: FDA-Public Use
  Company Number: IT-TEVA-414176ISR

PATIENT
  Age: 72 Year
  Sex: Male

DRUGS (4)
  1. QUETIAPINE [Suspect]
     Indication: INTENTIONAL SELF-INJURY
     Dates: start: 20130409, end: 20130409
  2. TAVOR 2.5MG [Concomitant]
     Indication: ANXIETY
  3. LACIREX 4MG [Concomitant]
     Indication: HYPERTENSION
  4. RATACAND 16MG [Concomitant]
     Indication: HYPERTENSION

REACTIONS (2)
  - Coma [Recovered/Resolved]
  - Drug abuse [Recovered/Resolved]
